FAERS Safety Report 18575522 (Version 2)
Quarter: 2021Q1

REPORT INFORMATION
  Report Type: Spontaneous
  Country: CA (occurrence: CA)
  Receive Date: 20201203
  Receipt Date: 20210219
  Transmission Date: 20210419
  Serious: Yes (Other)
  Sender: FDA-Public Use
  Company Number: CA-PFIZER INC-2020463431

PATIENT
  Age: 52 Year
  Sex: Male
  Weight: 65 kg

DRUGS (2)
  1. KEYTRUDA [Concomitant]
     Active Substance: PEMBROLIZUMAB
     Dosage: UNK
     Route: 065
  2. INLYTA [Suspect]
     Active Substance: AXITINIB
     Indication: RENAL CANCER
     Dosage: 5 MG, 2X/DAY
     Route: 048
     Dates: start: 20201208

REACTIONS (4)
  - Immobile [Not Recovered/Not Resolved]
  - Wheelchair user [Not Recovered/Not Resolved]
  - Off label use [Unknown]
  - Gait inability [Not Recovered/Not Resolved]
